FAERS Safety Report 5354871-5 (Version None)
Quarter: 2007Q2

REPORT INFORMATION
  Report Type: 
  Country: None (occurrence: None)
  Receive Date: 20070611
  Receipt Date: 20070529
  Transmission Date: 20071010
  Serious: Yes (Hospitalization, Disabling, Other)
  Sender: FDA-Public Use
  Company Number: 2003-01-1245

PATIENT
  Age: 44 Year
  Sex: Male
  Weight: 86.1834 kg

DRUGS (8)
  1. PEG-INTRON [Suspect]
     Indication: HEPATITIS C
     Dosage: WK; SC
     Route: 058
     Dates: start: 20020812, end: 20020916
  2. REBETOL [Suspect]
     Indication: HEPATITIS C
     Dosage: WK; PO
     Route: 048
     Dates: start: 20020812, end: 20020916
  3. ACETAMINOPHEN (CON.) [Concomitant]
  4. IBUPROFEN (CON.) [Concomitant]
  5. METHADONE (CON.) [Concomitant]
  6. MILK THISTLE FRUIT (CON.) [Concomitant]
  7. NICOTINE RESIN (CON.) [Concomitant]
  8. CLARITIN (CON.) [Concomitant]

REACTIONS (22)
  - ACTIVITIES OF DAILY LIVING IMPAIRED [None]
  - BLINDNESS [None]
  - BLINDNESS UNILATERAL [None]
  - CHLOROPSIA [None]
  - ENCEPHALITIS [None]
  - EYE DISCHARGE [None]
  - HAEMATOCRIT DECREASED [None]
  - HAEMOGLOBIN DECREASED [None]
  - IRRITABILITY [None]
  - NUCLEAR MAGNETIC RESONANCE IMAGING BRAIN ABNORMAL [None]
  - OPTIC ATROPHY [None]
  - OPTIC ISCHAEMIC NEUROPATHY [None]
  - OPTIC NEURITIS [None]
  - OTITIS MEDIA [None]
  - PHOTOPHOBIA [None]
  - PURULENT DISCHARGE [None]
  - RED BLOOD CELL COUNT DECREASED [None]
  - SCOTOMA [None]
  - TRAUMATIC BRAIN INJURY [None]
  - VERTIGO [None]
  - VISUAL FIELD DEFECT [None]
  - XANTHOPSIA [None]
